FAERS Safety Report 6654020-7 (Version None)
Quarter: 2010Q1

REPORT INFORMATION
  Report Type: 
  Country: None (occurrence: None)
  Receive Date: 20100326
  Receipt Date: 20100315
  Transmission Date: 20100710
  Serious: Yes (Death, Hospitalization, Disabling)
  Sender: FDA-Public Use
  Company Number: JP-ABBOTT-08P-087-0444456-00

PATIENT
  Age: 80 Year
  Sex: Male

DRUGS (24)
  1. LEUPROLIDE ACETATE [Suspect]
     Indication: PROSTATE CANCER STAGE IV
     Route: 058
     Dates: start: 20070516, end: 20080930
  2. LEUPROLIDE ACETATE [Suspect]
     Route: 058
     Dates: start: 20070516, end: 20070516
  3. LEUPROLIDE ACETATE [Suspect]
     Route: 058
     Dates: start: 20070808, end: 20070808
  4. LEUPROLIDE ACETATE [Suspect]
     Route: 058
     Dates: start: 20071030, end: 20071030
  5. LEUPROLIDE ACETATE [Suspect]
     Route: 058
     Dates: start: 20080122, end: 20080122
  6. LEUPROLIDE ACETATE [Suspect]
     Route: 058
     Dates: start: 20080415, end: 20080415
  7. LEUPROLIDE ACETATE [Suspect]
     Route: 058
     Dates: start: 20080708, end: 20080708
  8. LEUPROLIDE ACETATE [Suspect]
     Dosage: LAST DOSE
     Route: 058
     Dates: start: 20080930, end: 20080930
  9. CASODEX [Concomitant]
     Indication: PROSTATE CANCER STAGE IV
     Route: 048
     Dates: end: 20071225
  10. HARNAL [Concomitant]
     Indication: DYSURIA
     Route: 048
     Dates: end: 20090205
  11. LOXONIN [Concomitant]
     Indication: PAIN
     Route: 048
     Dates: end: 20071225
  12. LOXONIN [Concomitant]
     Route: 048
     Dates: end: 20090205
  13. LAC B [Concomitant]
     Indication: DIARRHOEA
     Route: 048
     Dates: end: 20071225
  14. LAC B [Concomitant]
     Route: 048
     Dates: end: 20090205
  15. OMEPRAL [Concomitant]
     Indication: GASTRITIS
     Route: 048
     Dates: start: 20070928, end: 20071225
  16. OMEPRAL [Concomitant]
     Route: 048
     Dates: end: 20090205
  17. TOUGHMAC E [Concomitant]
     Indication: GASTRITIS
     Route: 048
     Dates: start: 20070928, end: 20071225
  18. TOUGHMAC E [Concomitant]
     Route: 048
     Dates: end: 20090205
  19. MAGMITT [Concomitant]
     Indication: GASTRITIS
     Route: 048
     Dates: start: 20070928, end: 20071225
  20. MAGMITT [Concomitant]
     Route: 048
     Dates: end: 20090205
  21. NAUZELIN [Concomitant]
     Indication: GASTRITIS
     Route: 048
     Dates: start: 20070920, end: 20071225
  22. NAUZELIN [Concomitant]
     Route: 048
     Dates: end: 20090205
  23. MOBIC [Concomitant]
     Indication: PAIN
     Route: 048
     Dates: start: 20071030, end: 20071226
  24. MOBIC [Concomitant]
     Route: 048
     Dates: end: 20090205

REACTIONS (5)
  - ABDOMINAL ADHESIONS [None]
  - CERVICAL SPINAL STENOSIS [None]
  - GASTRIC CANCER [None]
  - ILEUS [None]
  - PULMONARY OEDEMA [None]
